FAERS Safety Report 17023569 (Version 2)
Quarter: 2020Q4

REPORT INFORMATION
  Report Type: Other
  Country: US (occurrence: US)
  Receive Date: 20191113
  Receipt Date: 20201220
  Transmission Date: 20210113
  Serious: Yes (Hospitalization)
  Sender: FDA-Public Use
  Company Number: US-ROCHE-2462765

PATIENT
  Sex: Male
  Weight: 167.98 kg

DRUGS (6)
  1. OCREVUS [Suspect]
     Active Substance: OCRELIZUMAB
     Indication: SECONDARY PROGRESSIVE MULTIPLE SCLEROSIS
     Dosage: 300 MG ON DAY 1 AND 15 (OVER 2.5 HRS) AND THEN 600 MG ONCE IN 6 MONTHS (OVER 3.5 HRS).?ON 04/MAY/201
     Route: 042
     Dates: start: 20180418
  2. COLACE [Concomitant]
     Active Substance: DOCUSATE SODIUM
     Route: 048
     Dates: start: 2018
  3. FISH OIL [Concomitant]
     Active Substance: FISH OIL
     Route: 048
  4. OXYBUTYNIN. [Concomitant]
     Active Substance: OXYBUTYNIN CHLORIDE
     Indication: NEUROGENIC BLADDER
     Route: 048
  5. WELLBUTRIN XL [Concomitant]
     Active Substance: BUPROPION HYDROCHLORIDE
     Indication: DEPRESSION
     Route: 048
  6. MIRALAX [Concomitant]
     Active Substance: POLYETHYLENE GLYCOL 3350
     Indication: CONSTIPATION
     Route: 048
     Dates: start: 2020

REACTIONS (3)
  - Off label use [Unknown]
  - Intentional product use issue [Unknown]
  - Urinary tract infection [Recovered/Resolved]
